FAERS Safety Report 8409738-2 (Version None)
Quarter: 2012Q2

REPORT INFORMATION
  Report Type: 
  Country: None (occurrence: None)
  Receive Date: 20120605
  Receipt Date: 20120524
  Transmission Date: 20120825
  Serious: Yes (Hospitalization)
  Sender: FDA-Public Use
  Company Number: US-US-EMD SERONO, INC.-7135673

PATIENT
  Sex: Male
  Weight: 66 kg

DRUGS (1)
  1. REBIF [Suspect]
     Indication: MULTIPLE SCLEROSIS
     Route: 058
     Dates: start: 20050805

REACTIONS (6)
  - MULTIPLE SCLEROSIS RELAPSE [None]
  - INJECTION SITE INDURATION [None]
  - INFLUENZA LIKE ILLNESS [None]
  - INJECTION SITE DISCOLOURATION [None]
  - CEREBROVASCULAR ACCIDENT [None]
  - INJECTION SITE HAEMATOMA [None]
